FAERS Safety Report 6082715-5 (Version None)
Quarter: 2009Q1

REPORT INFORMATION
  Report Type: 
  Country: None (occurrence: None)
  Receive Date: 20090202
  Receipt Date: 20070619
  Transmission Date: 20090719
  Serious: Yes (Hospitalization)
  Sender: FDA-Public Use
  Company Number: 259309

PATIENT
  Age: 38 Year
  Sex: Female
  Weight: 68.9 kg

DRUGS (9)
  1. NOVOLOG [Suspect]
     Indication: INSULIN-REQUIRING TYPE 2 DIABETES MELLITUS
     Dosage: 9 IU, QD + SLIDING SCALE, SUBCUTANEOUS
     Route: 058
     Dates: start: 20050101
  2. NOVOLOG [Suspect]
     Indication: TYPE 2 DIABETES MELLITUS
     Dosage: 9 IU, QD + SLIDING SCALE, SUBCUTANEOUS
     Route: 058
     Dates: start: 20050101
  3. LANTUS [Concomitant]
  4. COLACE (DOCUSATE SODIUM) [Concomitant]
  5. XANAX [Concomitant]
  6. NEXIUM [Concomitant]
  7. DILAUDID [Concomitant]
  8. VIOKASE /00014701/ (PANCREATIN) [Concomitant]
  9. VITAMINS [Concomitant]

REACTIONS (1)
  - BLOOD GLUCOSE INCREASED [None]
